FAERS Safety Report 17076291 (Version 3)
Quarter: 2020Q1

REPORT INFORMATION
  Report Type: Report from Study
  Country: PL (occurrence: PL)
  Receive Date: 20191126
  Receipt Date: 20200226
  Transmission Date: 20200409
  Serious: No
  Sender: FDA-Public Use
  Company Number: PL-JNJFOC-20191103584

PATIENT
  Age: 53 Year
  Sex: Male
  Weight: 92.1 kg

DRUGS (1)
  1. GUSELKUMAB [Suspect]
     Active Substance: GUSELKUMAB
     Indication: PSORIASIS
     Route: 058
     Dates: start: 20150427

REACTIONS (1)
  - Tongue neoplasm malignant stage unspecified [Recovering/Resolving]

NARRATIVE: CASE EVENT DATE: 20191030
